FAERS Safety Report 14621706 (Version 2)
Quarter: 2019Q1

REPORT INFORMATION
  Report Type: Spontaneous
  Country: FR (occurrence: FR)
  Receive Date: 20180310
  Receipt Date: 20190116
  Transmission Date: 20190417
  Serious: Yes (Hospitalization, Other)
  Sender: FDA-Public Use
  Company Number: FR-AUROBINDO-AUR-APL-2018-012809

PATIENT
  Sex: Female

DRUGS (6)
  1. METHOTREXATE. [Suspect]
     Active Substance: METHOTREXATE
     Indication: ACUTE LYMPHOCYTIC LEUKAEMIA
     Dosage: 12 MG, UNK
     Route: 037
     Dates: start: 20171214
  2. VINCRISTINE [Suspect]
     Active Substance: VINCRISTINE
     Indication: ACUTE LYMPHOCYTIC LEUKAEMIA
     Dosage: 1.15 MG, UNK
     Route: 042
     Dates: start: 20171221
  3. VINCRISTINE [Suspect]
     Active Substance: VINCRISTINE
     Dosage: 1 UNK
     Route: 065
     Dates: start: 20171229, end: 20180112
  4. DEXAMETHASONE. [Suspect]
     Active Substance: DEXAMETHASONE
     Indication: ACUTE LYMPHOCYTIC LEUKAEMIA
     Dosage: 84 MG, UNK
     Route: 048
     Dates: start: 20171221, end: 20180111
  5. PEGASPARGASE [Suspect]
     Active Substance: PEGASPARGASE
     Indication: ACUTE LYMPHOCYTIC LEUKAEMIA
     Dosage: 875 IU, UNK
     Route: 042
     Dates: start: 20171226, end: 20180109
  6. PREDNISONE. [Suspect]
     Active Substance: PREDNISONE
     Indication: ACUTE LYMPHOCYTIC LEUKAEMIA
     Dosage: 350 MG, UNK
     Route: 048
     Dates: start: 20171214, end: 20171220

REACTIONS (3)
  - Potentiating drug interaction [Recovering/Resolving]
  - Seizure [Recovering/Resolving]
  - Cerebral venous thrombosis [Recovering/Resolving]

NARRATIVE: CASE EVENT DATE: 20180120
